FAERS Safety Report 8398714-4 (Version None)
Quarter: 2012Q2

REPORT INFORMATION
  Report Type: 
  Country: None (occurrence: None)
  Receive Date: 20120524
  Receipt Date: 20120517
  Transmission Date: 20120825
  Serious: Yes (Life-Threatening, Hospitalization, Other)
  Sender: FDA-Public Use
  Company Number: UKP11000075

PATIENT
  Age: 61 Year
  Sex: Female
  Weight: 57.6 kg

DRUGS (1)
  1. DIDRONEL [Suspect]
     Indication: OSTEOPOROSIS PROPHYLAXIS
     Dosage: 400 MG, CYCLIC 1/D, ORAL
     Route: 048
     Dates: start: 20010319, end: 20110201

REACTIONS (2)
  - OESOPHAGEAL SQUAMOUS CELL CARCINOMA [None]
  - OESOPHAGEAL STENOSIS [None]
